FAERS Safety Report 4314622-X (Version None)
Quarter: 2004Q1

REPORT INFORMATION
  Report Type: 
  Country: None (occurrence: None)
  Receive Date: 20040308
  Receipt Date: 20040226
  Transmission Date: 20041129
  Serious: Yes (Hospitalization)
  Sender: FDA-Public Use
  Company Number: 2004012919

PATIENT
  Age: 34 Year
  Sex: Male

DRUGS (3)
  1. ZYRTEC [Suspect]
     Indication: ECZEMA
     Dosage: 10 MG (DAILY), ORAL
     Route: 048
     Dates: start: 20030601, end: 20030717
  2. WARFARIN SODIUM [Suspect]
     Indication: AORTIC VALVE DISEASE
     Dosage: 10 MG (DAILY), ORAL
     Route: 048
     Dates: start: 20020101
  3. WARFARIN SODIUM [Suspect]
     Indication: AORTIC VALVE DISEASE
     Dosage: 10 MG (DAILY), ORAL
     Route: 048
     Dates: start: 20030719

REACTIONS (5)
  - ALCOHOLIC PANCREATITIS [None]
  - DIARRHOEA [None]
  - HAEMATURIA [None]
  - INTERNATIONAL NORMALISED RATIO INCREASED [None]
  - PAIN [None]
